FAERS Safety Report 8193906-1 (Version None)
Quarter: 2012Q1

REPORT INFORMATION
  Report Type: 
  Country: None (occurrence: None)
  Receive Date: 20120308
  Receipt Date: 20120305
  Transmission Date: 20120608
  Serious: Yes (Life-Threatening, Hospitalization, Other)
  Sender: FDA-Public Use
  Company Number: US-ELI_LILLY_AND_COMPANY-US201203001587

PATIENT
  Sex: Male

DRUGS (5)
  1. DEXAMETHASONE [Concomitant]
     Dosage: HIGH DOSE
  2. FOLIC ACID [Concomitant]
  3. ALIMTA [Suspect]
     Indication: NON-SMALL CELL LUNG CANCER
     Dosage: 500 MG/M2, UNK
     Route: 042
  4. CARBOPLATIN [Concomitant]
  5. VITAMIN B-12 [Concomitant]

REACTIONS (5)
  - PANCYTOPENIA [None]
  - HOSPITALISATION [None]
  - SEPSIS [None]
  - ENDOTRACHEAL INTUBATION [None]
  - PERFORMANCE STATUS DECREASED [None]
